FAERS Safety Report 14415251 (Version 1)
Quarter: 2018Q1

REPORT INFORMATION
  Report Type: Report from Study
  Country: None (occurrence: IT)
  Receive Date: 20180121
  Receipt Date: 20180121
  Transmission Date: 20180509
  Serious: Yes (Hospitalization)
  Sender: FDA-Public Use
  Company Number: IT-ABBVIE-17P-083-1925842-00

PATIENT
  Age: 1 Year
  Sex: Male
  Weight: 9 kg

DRUGS (2)
  1. SYNAGIS [Suspect]
     Active Substance: PALIVIZUMAB
     Indication: ANTIVIRAL PROPHYLAXIS
     Dosage: 15MG/KG
     Route: 030
     Dates: start: 20170221, end: 20170221
  2. SYNAGIS [Suspect]
     Active Substance: PALIVIZUMAB
     Route: 030
     Dates: start: 20170221, end: 20170221

REACTIONS (3)
  - Respiratory syncytial virus bronchitis [Recovered/Resolved]
  - Drug ineffective [Recovered/Resolved]
  - Pneumovirus test positive [Recovered/Resolved]

NARRATIVE: CASE EVENT DATE: 20170304
